FAERS Safety Report 4877410-1 (Version None)
Quarter: 2006Q1

REPORT INFORMATION
  Report Type: 
  Country: None (occurrence: None)
  Receive Date: 20060109
  Receipt Date: 20060109
  Transmission Date: 20060701
  Serious: Yes (Life-Threatening, Hospitalization)
  Sender: FDA-Public Use
  Company Number: None

PATIENT
  Age: 9 Year
  Sex: Male
  Weight: 29.4838 kg

DRUGS (2)
  1. ADVAIR DISKUS 100/50 [Suspect]
     Indication: ASTHMA
     Dosage: 500  2 X DAY PO
     Route: 048
     Dates: start: 20051121, end: 20051121
  2. ADVAIR DISKUS 100/50 [Suspect]
     Indication: PROPHYLAXIS
     Dosage: 500  2 X DAY PO
     Route: 048
     Dates: start: 20051121, end: 20051121

REACTIONS (2)
  - ASTHMA [None]
  - DRUG HYPERSENSITIVITY [None]
